FAERS Safety Report 4942817-0 (Version None)
Quarter: 2006Q1

REPORT INFORMATION
  Report Type: 
  Country: None (occurrence: None)
  Receive Date: 20060314
  Receipt Date: 20060303
  Transmission Date: 20060701
  Serious: Yes (Hospitalization)
  Sender: FDA-Public Use
  Company Number: TW-KINGPHARMUSA00001-K200600304

PATIENT
  Age: 3 Year
  Sex: Male
  Weight: 14 kg

DRUGS (1)
  1. SILVADENE CREAM 1% [Suspect]
     Indication: WOUND TREATMENT
     Dosage: 1 %, UNK
     Route: 061

REACTIONS (3)
  - CYANOSIS [None]
  - METHAEMOGLOBINAEMIA [None]
  - OXYGEN SATURATION DECREASED [None]
